FAERS Safety Report 7429632-3 (Version None)
Quarter: 2011Q2

REPORT INFORMATION
  Report Type: 
  Country: None (occurrence: None)
  Receive Date: 20110421
  Receipt Date: 20110414
  Transmission Date: 20111010
  Serious: Yes (Other)
  Sender: FDA-Public Use
  Company Number: B0714566A

PATIENT
  Age: 46 Year
  Sex: Male
  Weight: 69 kg

DRUGS (6)
  1. RISPERIDONE [Suspect]
     Indication: AGGRESSION
     Route: 048
     Dates: start: 20100505, end: 20101101
  2. PREZISTA [Suspect]
     Indication: HIV INFECTION
     Route: 048
     Dates: start: 20091201
  3. NORVIR [Suspect]
     Indication: HIV INFECTION
     Route: 048
     Dates: start: 20091201
  4. KIVEXA [Suspect]
     Indication: HIV INFECTION
     Route: 048
     Dates: start: 20091201
  5. MIRTAZAPINE [Suspect]
     Indication: DEPRESSION
     Dosage: 30MG PER DAY
     Route: 048
     Dates: start: 20100419, end: 20100902
  6. PAROXETINE HCL [Suspect]
     Indication: ANXIETY
     Dosage: 20MG PER DAY
     Route: 048
     Dates: start: 20100522

REACTIONS (1)
  - ABNORMAL WEIGHT GAIN [None]
